FAERS Safety Report 8286433-4 (Version None)
Quarter: 2012Q2

REPORT INFORMATION
  Report Type: 
  Country: None (occurrence: None)
  Receive Date: 20120411
  Receipt Date: 20120330
  Transmission Date: 20120825
  Serious: Yes (Hospitalization)
  Sender: FDA-Public Use
  Company Number: 08-AUR-06592

PATIENT
  Age: 3 Year
  Sex: Male

DRUGS (4)
  1. ZIDOVUDINE [Suspect]
     Indication: HIV INFECTION
  2. DIDANOSINE [Suspect]
     Indication: HIV INFECTION
  3. LAMIVUDINE [Suspect]
     Indication: HIV INFECTION
  4. NELFINAVIR MESYLATE [Suspect]
     Indication: HIV INFECTION

REACTIONS (2)
  - MATERNAL DRUGS AFFECTING FOETUS [None]
  - NEUROFIBROMATOSIS [None]
